FAERS Safety Report 16404467 (Version 1)
Quarter: 2019Q2

REPORT INFORMATION
  Report Type: Spontaneous
  Country: US (occurrence: US)
  Receive Date: 20190607
  Receipt Date: 20190607
  Transmission Date: 20190711
  Serious: No
  Sender: FDA-Public Use
  Company Number: US-PTC THERAPEUTICS, INC.-US-2019PTC000559

PATIENT
  Age: 11 Year
  Sex: Male

DRUGS (2)
  1. EMFLAZA [Suspect]
     Active Substance: DEFLAZACORT
     Dosage: 90 MG, (30 MG 3 TABLETS)
     Route: 048
     Dates: start: 20171103
  2. EMFLAZA [Suspect]
     Active Substance: DEFLAZACORT
     Indication: DUCHENNE MUSCULAR DYSTROPHY
     Dosage: 108 MG, (36 MG 3 TABLETS) EVERY SATURDAY AND SUNDAY
     Route: 048
     Dates: start: 20170624

REACTIONS (4)
  - Asthenia [Unknown]
  - Off label use [Unknown]
  - Disease progression [Unknown]
  - Cardiac disorder [Unknown]

NARRATIVE: CASE EVENT DATE: 20170624
